FAERS Safety Report 5863363-6 (Version None)
Quarter: 2008Q3

REPORT INFORMATION
  Report Type: 
  Country: None (occurrence: None)
  Receive Date: 20080828
  Receipt Date: 20080818
  Transmission Date: 20090109
  Serious: Yes (Hospitalization)
  Sender: FDA-Public Use
  Company Number: PL-PFIZER INC-2008068639

PATIENT
  Sex: Male
  Weight: 75 kg

DRUGS (4)
  1. XANAX [Suspect]
     Indication: ANXIETY DISORDER
     Dosage: DAILY DOSE:1.5MG
     Route: 048
  2. OXAZEPAM [Suspect]
     Indication: ANXIETY DISORDER
     Dosage: DAILY DOSE:30MG
     Route: 048
     Dates: end: 20080729
  3. ALL OTHER THERAPEUTIC PRODUCTS [Suspect]
     Indication: ANXIETY DISORDER
     Dosage: DAILY DOSE:10MG
     Route: 048
  4. ALPRAZOLAM [Suspect]
     Indication: ANXIETY DISORDER
     Dosage: DAILY DOSE:1.5MG
     Route: 048

REACTIONS (1)
  - PSYCHOMOTOR SKILLS IMPAIRED [None]
